FAERS Safety Report 8945869 (Version 1)
Quarter: 2012Q4

REPORT INFORMATION
  Report Type: 
  Country: FR (occurrence: FR)
  Receive Date: 20121205
  Receipt Date: 20121205
  Transmission Date: 20130627
  Serious: Yes (Death, Life-Threatening, Hospitalization, Other)
  Sender: FDA-Public Use
  Company Number: PHHY2012FR110236

PATIENT
  Age: 64 Year
  Sex: Male

DRUGS (6)
  1. NEORAL [Suspect]
     Indication: BONE MARROW TRANSPLANT
     Dosage: 50 mg, BID
  2. ACUITEL [Suspect]
     Indication: HYPERTENSION
     Dosage: 20 mg, daily
  3. EXJADE [Concomitant]
  4. FERRIPROX [Concomitant]
  5. COUMADINE [Concomitant]
     Dosage: 4 mg, UNK
  6. BISOPROLOL [Concomitant]

REACTIONS (8)
  - Death [Fatal]
  - Mucosal inflammation [Unknown]
  - Renal failure acute [Recovered/Resolved]
  - Urinary retention [Recovered/Resolved]
  - Toxicity to various agents [Recovered/Resolved]
  - Graft versus host disease in intestine [Unknown]
  - Graft versus host disease in skin [Unknown]
  - Nephropathy toxic [Recovered/Resolved]
